FAERS Safety Report 12671125 (Version 2)
Quarter: 2016Q3

REPORT INFORMATION
  Report Type: Spontaneous
  Country: US (occurrence: US)
  Receive Date: 20160822
  Receipt Date: 20160913
  Transmission Date: 20161109
  Serious: No
  Sender: FDA-Public Use
  Company Number: ALCN2016US005817

PATIENT
  Age: 31 Year
  Sex: Female

DRUGS (2)
  1. ZADITOR [Suspect]
     Active Substance: KETOTIFEN FUMARATE
     Indication: EYE PRURITUS
     Dosage: 2 GTT, BID
     Route: 047
     Dates: start: 201607
  2. ZADITOR [Suspect]
     Active Substance: KETOTIFEN FUMARATE
     Dosage: 2 GTT, BID
     Route: 047
     Dates: end: 201608

REACTIONS (1)
  - Eye allergy [Recovered/Resolved]

NARRATIVE: CASE EVENT DATE: 201607
